FAERS Safety Report 5267754-6 (Version None)
Quarter: 2007Q1

REPORT INFORMATION
  Report Type: 
  Country: None (occurrence: None)
  Receive Date: 20070316
  Receipt Date: 20070305
  Transmission Date: 20070707
  Serious: Yes (Hospitalization)
  Sender: FDA-Public Use
  Company Number: US-PFIZER INC-2007017119

PATIENT
  Age: 65 Year
  Sex: Male

DRUGS (5)
  1. NORVASC [Suspect]
  2. HYDROCHLOROTHIAZIDE [Suspect]
  3. METOPROLOL SUCCINATE [Suspect]
  4. HYDRALAZINE HCL [Suspect]
  5. BLINDED THERAPY [Suspect]

REACTIONS (1)
  - RENAL IMPAIRMENT [None]
